FAERS Safety Report 8721684 (Version 3)
Quarter: 2012Q4

REPORT INFORMATION
  Report Type: 
  Country: US (occurrence: US)
  Receive Date: 20120814
  Receipt Date: 20121011
  Transmission Date: 20130627
  Serious: Yes (Other)
  Sender: FDA-Public Use
  Company Number: US-SANOFI-AVENTIS-2012SA056399

PATIENT
  Age: 79 Year
  Sex: Male
  Weight: 83 kg

DRUGS (13)
  1. LANTUS SOLOSTAR [Suspect]
     Indication: TYPE 1 DIABETES MELLITUS
     Dosage: Dose:15 unit(s)
     Route: 058
     Dates: start: 2002
  2. LANTUS SOLOSTAR [Suspect]
     Indication: TYPE 1 DIABETES MELLITUS
     Dosage: Dose:15 unit(s)
     Route: 058
     Dates: start: 2002
  3. SOLOSTAR [Suspect]
     Indication: TYPE 1 DIABETES MELLITUS
     Dates: start: 2002
  4. SOLOSTAR [Suspect]
     Indication: TYPE 1 DIABETES MELLITUS
     Dates: start: 2002
  5. COUMADIN [Concomitant]
     Route: 065
     Dates: start: 2000
  6. LISINOPRIL [Concomitant]
     Indication: HYPERTENSION
     Route: 065
     Dates: start: 2002
  7. AMIODARONE [Concomitant]
     Indication: HYPERTENSION
     Route: 065
     Dates: start: 2002
  8. DILTIAZEM [Concomitant]
  9. POTASSIUM [Concomitant]
  10. SPIRIVA [Concomitant]
  11. MAGNESIUM [Concomitant]
  12. VITAMIN D [Concomitant]
     Dosage: Dose:2000 unit(s)
  13. ALL OTHER THERAPEUTIC PRODUCTS [Concomitant]

REACTIONS (1)
  - Hip fracture [Unknown]
